FAERS Safety Report 7164682-6 (Version None)
Quarter: 2010Q4

REPORT INFORMATION
  Report Type: 
  Country: None (occurrence: None)
  Receive Date: 20101215
  Receipt Date: 20101209
  Transmission Date: 20110411
  Serious: Yes (Hospitalization)
  Sender: FDA-Public Use
  Company Number: AU-PFIZER INC-2010151145

PATIENT
  Age: 79 Year
  Sex: Female
  Weight: 65.4 kg

DRUGS (6)
  1. REVATIO [Suspect]
     Indication: PULMONARY HYPERTENSION
     Dosage: 20 MG, 3X/DAY
     Route: 048
     Dates: start: 20100801
  2. THELIN [Concomitant]
     Indication: PULMONARY HYPERTENSION
     Dosage: 100 MG, 1X/DAY
     Route: 048
     Dates: start: 20081210
  3. ATENOLOL [Concomitant]
     Indication: HYPERTENSION
     Dosage: 50 MG, 1X/DAY MANE
     Route: 048
     Dates: start: 20080319
  4. FRUSEMIDE [Concomitant]
     Dosage: 40 MG, 1X/DAY MANE
     Route: 048
     Dates: start: 20081023
  5. SPIRONOLACTONE [Concomitant]
     Dosage: 12.5 MG, 1X/DAY MANE
     Route: 048
     Dates: start: 20100902
  6. METFORMIN [Concomitant]
     Dosage: 1 G, 1X/DAY NOCTE
     Route: 048
     Dates: start: 20080319

REACTIONS (3)
  - INTERNATIONAL NORMALISED RATIO INCREASED [None]
  - PNEUMONIA [None]
  - SEPSIS [None]
